FAERS Safety Report 22961997 (Version 24)
Quarter: 2025Q3

REPORT INFORMATION
  Report Type: Spontaneous
  Country: US (occurrence: US)
  Receive Date: 20230920
  Receipt Date: 20250715
  Transmission Date: 20251021
  Serious: Yes (Hospitalization, Disabling, Other)
  Sender: AMGEN
  Company Number: US-HORIZON THERAPEUTICS-HZN-2023-006881

PATIENT
  Age: 28 Year
  Sex: Female
  Weight: 72 kg

DRUGS (113)
  1. TEPEZZA [Suspect]
     Active Substance: TEPROTUMUMAB-TRBW
     Indication: Endocrine ophthalmopathy
     Dosage: 10 MILLIGRAM/KILOGRAM, Q3WK (FIRST INFUSION)
     Route: 042
     Dates: start: 202208
  2. TEPEZZA [Suspect]
     Active Substance: TEPROTUMUMAB-TRBW
     Indication: Graves^ disease
     Dosage: 10 MILLIGRAM/KILOGRAM, Q3WK (SECOND INFUSION)
     Route: 042
  3. TEPEZZA [Suspect]
     Active Substance: TEPROTUMUMAB-TRBW
     Dosage: 20 MILLIGRAM/KILOGRAM, Q3WK (THIRD INFUSION)
     Route: 042
  4. TEPEZZA [Suspect]
     Active Substance: TEPROTUMUMAB-TRBW
     Dosage: 20 MILLIGRAM/KILOGRAM, Q3WK (FOURTH INFUSION)
     Route: 042
  5. TEPEZZA [Suspect]
     Active Substance: TEPROTUMUMAB-TRBW
     Dosage: 20 MILLIGRAM/KILOGRAM, Q3WK (FIFTH INFUSION)
     Route: 042
  6. TEPEZZA [Suspect]
     Active Substance: TEPROTUMUMAB-TRBW
     Dosage: 20 MILLIGRAM/KILOGRAM, Q3WK (SIXTH INFUSION)
     Route: 042
  7. TEPEZZA [Suspect]
     Active Substance: TEPROTUMUMAB-TRBW
     Dosage: 20 MILLIGRAM/KILOGRAM, Q3WK (SEVENTH INFUSION)
     Route: 042
  8. TEPEZZA [Suspect]
     Active Substance: TEPROTUMUMAB-TRBW
     Dosage: 20 MILLIGRAM/KILOGRAM, Q3WK (EIGHTH INFUSION)
     Route: 042
     Dates: start: 202304
  9. TEPEZZA [Suspect]
     Active Substance: TEPROTUMUMAB-TRBW
     Dosage: 760 MILLIGRAM, Q3WK
     Route: 042
     Dates: start: 20221219, end: 20221219
  10. TEPEZZA [Suspect]
     Active Substance: TEPROTUMUMAB-TRBW
     Dosage: 1456 MILLIGRAM, Q3WK
     Route: 042
     Dates: start: 20230109, end: 20230109
  11. TEPEZZA [Suspect]
     Active Substance: TEPROTUMUMAB-TRBW
     Dosage: 1456 MILLIGRAM, Q3WK
     Route: 042
     Dates: start: 20230130, end: 20230130
  12. TEPEZZA [Suspect]
     Active Substance: TEPROTUMUMAB-TRBW
     Dosage: 1456 MILLIGRAM, Q3WK
     Route: 042
     Dates: start: 20230220, end: 20230220
  13. TEPEZZA [Suspect]
     Active Substance: TEPROTUMUMAB-TRBW
     Dosage: 1456 MILLIGRAM, Q3WK
     Route: 042
     Dates: start: 20230313, end: 20230313
  14. TEPEZZA [Suspect]
     Active Substance: TEPROTUMUMAB-TRBW
     Dosage: 1456 MILLIGRAM, Q3WK
     Route: 042
     Dates: start: 20230403, end: 20230403
  15. TEPEZZA [Suspect]
     Active Substance: TEPROTUMUMAB-TRBW
     Dosage: 1456 MILLIGRAM, Q3WK
     Route: 042
     Dates: start: 20230424, end: 20230424
  16. TEPEZZA [Suspect]
     Active Substance: TEPROTUMUMAB-TRBW
     Dosage: 1456 MILLIGRAM, Q3WK
     Route: 042
     Dates: start: 20230522, end: 20230522
  17. PREDNISONE [Suspect]
     Active Substance: PREDNISONE
     Indication: Product used for unknown indication
     Route: 048
     Dates: start: 20170322, end: 20170328
  18. PREDNISONE [Suspect]
     Active Substance: PREDNISONE
     Dosage: 10 MILLIGRAM, QD (2 TABLET)
     Route: 048
  19. PREDNISONE [Suspect]
     Active Substance: PREDNISONE
     Dosage: 20 MILLIGRAM, QD
     Route: 048
     Dates: end: 20221012
  20. RESTASIS [Concomitant]
     Active Substance: CYCLOSPORINE
     Dosage: UNK, BID 1 DROP (0.05 PERCENT EYE DROPS)
     Route: 047
  21. EYSUVIS [Concomitant]
     Active Substance: LOTEPREDNOL ETABONATE
     Dosage: 1 DROP, QID, 2WEEKS (0.25 PERCENT  EYE DROPS)
     Route: 047
     Dates: end: 20230320
  22. Artificial tears [Concomitant]
     Dosage: UNK, TID, BOTH EYES
     Route: 047
  23. SYNTHROID [Concomitant]
     Active Substance: LEVOTHYROXINE SODIUM
     Indication: Post procedural hypothyroidism
     Dosage: 88 MICROGRAM, QD (EVERY MORNING ON AN EMPTY STOMACH)
     Route: 048
     Dates: start: 20150914
  24. SYNTHROID [Concomitant]
     Active Substance: LEVOTHYROXINE SODIUM
     Dosage: 88 MICROGRAM, QD
     Route: 048
     Dates: start: 20220819
  25. SYNTHROID [Concomitant]
     Active Substance: LEVOTHYROXINE SODIUM
     Dosage: 88 MICROGRAM, QD
     Route: 048
     Dates: start: 20230508
  26. SYNTHROID [Concomitant]
     Active Substance: LEVOTHYROXINE SODIUM
     Dosage: 88 MICROGRAM, QD (MORNING)
     Route: 048
     Dates: start: 20240411
  27. ATORVASTATIN [Concomitant]
     Active Substance: ATORVASTATIN
     Dosage: 20 MILLIGRAM, QD (BEDTIME)(HS)
     Route: 048
     Dates: start: 20220819
  28. ATORVASTATIN [Concomitant]
     Active Substance: ATORVASTATIN
     Dosage: 20 MILLIGRAM, QD
     Route: 048
     Dates: start: 20230618
  29. ATORVASTATIN [Concomitant]
     Active Substance: ATORVASTATIN
     Dosage: 20 MILLIGRAM, QD (AT BEDTIME FOR 90 DAYS)
     Route: 048
     Dates: start: 20240627
  30. ASTELIN [Concomitant]
     Active Substance: AZELASTINE HYDROCHLORIDE
     Route: 045
     Dates: start: 20230620
  31. FLONASE [Concomitant]
     Active Substance: FLUTICASONE PROPIONATE
     Route: 045
  32. PREDNISOLONE ACETATE [Concomitant]
     Active Substance: PREDNISOLONE ACETATE
     Dosage: 1 DROP, BID (1 % EYEDROPS,SUSPENSION) (INTO BOTH EYES)
     Route: 047
     Dates: start: 20240307
  33. AMOXICILLIN [Concomitant]
     Active Substance: AMOXICILLIN
     Dosage: 875 MILLIGRAM, Q12H
     Route: 048
     Dates: start: 20230614
  34. AMOXICILLIN [Concomitant]
     Active Substance: AMOXICILLIN
     Dosage: 500 MILLIGRAM, TID
     Route: 048
     Dates: start: 20231127, end: 20240411
  35. CLAVULANATE POTASSIUM [Concomitant]
     Active Substance: CLAVULANATE POTASSIUM
     Route: 065
     Dates: start: 20230614
  36. BENZONATATE [Concomitant]
     Active Substance: BENZONATATE
     Dosage: 100 MILLIGRAM, TID
     Route: 048
     Dates: start: 20230918, end: 20240411
  37. CEPHALEXIN [Concomitant]
     Active Substance: CEPHALEXIN
     Dosage: 500 MILLIGRAM, Q6H
     Route: 048
     Dates: start: 20230410, end: 20240411
  38. CIPRODEX [Concomitant]
     Active Substance: CIPROFLOXACIN HYDROCHLORIDE\DEXAMETHASONE
     Dosage: UNK, BID (OTIC ROUTE)  (0.3 %-0.1 % EARDROP)
     Route: 065
     Dates: end: 20240411
  39. IBUPROFEN [Concomitant]
     Active Substance: IBUPROFEN
     Indication: Pain
     Dosage: 600 MILLIGRAM, Q8H, (4 TABLETS)
     Route: 048
     Dates: end: 20230614
  40. IBUPROFEN [Concomitant]
     Active Substance: IBUPROFEN
     Dosage: 800 MILLIGRAM, Q8H
     Route: 048
     Dates: start: 20221115, end: 20230614
  41. IBUPROFEN [Concomitant]
     Active Substance: IBUPROFEN
     Dosage: 800 MILLIGRAM, Q6H
     Route: 048
     Dates: end: 20240411
  42. METHYLPREDNISOLONE [Concomitant]
     Active Substance: METHYLPREDNISOLONE
     Route: 048
     Dates: end: 20240411
  43. MONTELUKAST [Concomitant]
     Active Substance: MONTELUKAST
     Dosage: 10 MILLIGRAM, QD (EVERY EVENING)
     Route: 048
     Dates: end: 20240411
  44. TYLENOL [Concomitant]
     Active Substance: ACETAMINOPHEN
     Dosage: 650 MILLIGRAM, Q6H
     Route: 048
     Dates: start: 20221115, end: 20230614
  45. TYLENOL [Concomitant]
     Active Substance: ACETAMINOPHEN
     Dosage: 650 MILLIGRAM, Q4H
     Route: 048
  46. VOLTAREN [Concomitant]
     Active Substance: DICLOFENAC SODIUM
     Route: 061
     Dates: start: 20221101, end: 20230614
  47. LEVOXYL [Concomitant]
     Active Substance: LEVOTHYROXINE SODIUM
     Dosage: 88 MICROGRAM, QD (MORNING)
     Route: 048
     Dates: start: 20180417, end: 20230918
  48. ROBAXIN [Concomitant]
     Active Substance: METHOCARBAMOL
     Dosage: 500 MILLIGRAM (ONE TABLET 4 TIMES A DAY)
     Route: 048
     Dates: start: 20221121
  49. ROCEPHIN [Concomitant]
     Active Substance: CEFTRIAXONE SODIUM
     Route: 065
  50. DILAUDID [Concomitant]
     Active Substance: HYDROMORPHONE HYDROCHLORIDE
     Dosage: 0.5 MILLIGRAM, Q6H
     Route: 042
  51. ZOFRAN [Concomitant]
     Active Substance: ONDANSETRON HYDROCHLORIDE
     Dosage: 4 MILLIGRAM, Q6H
     Route: 042
  52. GLYCOLAX [Concomitant]
     Active Substance: POLYETHYLENE GLYCOL 3350
     Dosage: 17 GRAM, BID
     Route: 048
  53. PERI-COLACE [Concomitant]
     Active Substance: CASANTHRANOL\DOCUSATE SODIUM
     Route: 048
  54. LIPITOR [Concomitant]
     Active Substance: ATORVASTATIN CALCIUM
     Dosage: 20 MILLIGRAM, QD (EVERY NIGHT)
     Route: 048
     Dates: start: 20230618
  55. NORCO [Concomitant]
     Active Substance: ACETAMINOPHEN\HYDROCODONE BITARTRATE
     Dosage: 330 MILLIGRAM, Q6H (5-325 MG TABLET) (IF NEEDED FOR SEVERE PAIN FOR UP TO 12 DOSES)
     Route: 048
     Dates: start: 20221001, end: 20221107
  56. LIDODERM [Concomitant]
     Active Substance: LIDOCAINE
     Route: 061
  57. VALIUM [Concomitant]
     Active Substance: DIAZEPAM
     Route: 042
  58. Dulcolax [Concomitant]
  59. BENADRYL [Concomitant]
     Active Substance: DIPHENHYDRAMINE HYDROCHLORIDE
  60. COLACE [Concomitant]
     Active Substance: DOCUSATE SODIUM
     Route: 048
  61. NEURONTIN [Concomitant]
     Active Substance: GABAPENTIN
     Route: 048
  62. TRANSDERM SCOP [Concomitant]
     Active Substance: SCOPOLAMINE
  63. EXPAREL [Concomitant]
     Active Substance: BUPIVACAINE
  64. XYLOCAINE [Concomitant]
     Active Substance: LIDOCAINE HYDROCHLORIDE
     Route: 065
  65. Fleet [Concomitant]
     Route: 065
  66. FLEXERIL [Concomitant]
     Active Substance: CYCLOBENZAPRINE HYDROCHLORIDE
     Dosage: 10 MILLIGRAM, Q8H (IF NEEDED FOR MUSCLE SPASMS FOR UP TO 20 DOSES)
     Route: 048
     Dates: start: 20221001, end: 20221107
  67. TORADOL [Concomitant]
     Active Substance: KETOROLAC TROMETHAMINE
     Route: 042
  68. TORADOL [Concomitant]
     Active Substance: KETOROLAC TROMETHAMINE
     Dosage: 60 MILLIGRAM, QD
     Route: 030
     Dates: start: 20220930, end: 20220930
  69. SOLU-MEDROL [Concomitant]
     Active Substance: METHYLPREDNISOLONE SODIUM SUCCINATE
     Route: 065
  70. MEDROL [Concomitant]
     Active Substance: METHYLPREDNISOLONE
     Route: 048
  71. TIROSINT [Concomitant]
     Active Substance: LEVOTHYROXINE SODIUM
     Dosage: 100 MICROGRAM, QD (ONE TIME EACH DAY IN THE MORNING)
     Route: 048
     Dates: end: 20221107
  72. DELTASONE [Concomitant]
     Active Substance: PREDNISONE
     Route: 048
     Dates: start: 20221001, end: 20221006
  73. NORFLEX [Concomitant]
     Active Substance: ORPHENADRINE CITRATE
     Route: 030
  74. NORFLEX [Concomitant]
     Active Substance: ORPHENADRINE CITRATE
     Dosage: 60 MILLIGRAM, QD
     Route: 030
     Dates: start: 20220930, end: 20220930
  75. SYSTANE (HYPROMELLOSE 2910 (4000 MPA.S)) [Concomitant]
     Active Substance: HYPROMELLOSE 2910 (4000 MPA.S)
     Dosage: 2 DROP, TID
     Route: 047
     Dates: start: 20221010, end: 20230320
  76. PERCOCET [Concomitant]
     Active Substance: ACETAMINOPHEN\OXYCODONE HYDROCHLORIDE
     Dosage: 330 MILLIGRAM, QD (5-325 MG PER TABLET ONE TABLET)
     Route: 048
     Dates: start: 20220930, end: 20220930
  77. PERCOCET [Concomitant]
     Active Substance: ACETAMINOPHEN\OXYCODONE HYDROCHLORIDE
     Route: 048
     Dates: start: 20221115, end: 20230614
  78. CANNABIS SATIVA SUBSP. INDICA TOP [Concomitant]
     Active Substance: CANNABIS SATIVA SUBSP. INDICA TOP
     Route: 065
  79. METHOCARBAMOL [Concomitant]
     Active Substance: METHOCARBAMOL
     Dosage: 500 MILLIGRAM, TID
     Route: 065
     Dates: end: 20230320
  80. MELOXICAM [Concomitant]
     Active Substance: MELOXICAM
     Route: 048
     Dates: end: 20230320
  81. GABAPENTIN [Concomitant]
     Active Substance: GABAPENTIN
     Dosage: 300 MILLIGRAM, BID
     Route: 048
     Dates: end: 20230320
  82. CYCLOBENZAPRINE [Concomitant]
     Active Substance: CYCLOBENZAPRINE
     Route: 065
     Dates: end: 20230320
  83. DICLOFENAC SODIUM [Concomitant]
     Active Substance: DICLOFENAC SODIUM
     Dosage: 2 GRAM, QID
     Route: 061
     Dates: end: 20230320
  84. DEXAMETHASONE\NEOMYCIN SULFATE\POLYMYXIN B SULFATE [Concomitant]
     Active Substance: DEXAMETHASONE\NEOMYCIN SULFATE\POLYMYXIN B SULFATE
     Route: 065
  85. AZELASTINE [Concomitant]
     Active Substance: AZELASTINE
     Dosage: 137 MICROGRAM, (TWO SPRAYS EACH NOSTRIL)
     Route: 045
  86. DOTAREM [Concomitant]
     Active Substance: GADOTERATE MEGLUMINE
     Route: 042
  87. GADODIAMIDE [Concomitant]
     Active Substance: GADODIAMIDE
     Route: 065
     Dates: start: 20130116
  88. DESONIDE [Concomitant]
     Active Substance: DESONIDE
     Route: 065
     Dates: start: 20150914
  89. ATROVENT [Concomitant]
     Active Substance: IPRATROPIUM BROMIDE
     Route: 045
     Dates: start: 20150914
  90. DERMOTIC [Concomitant]
     Active Substance: FLUOCINOLONE ACETONIDE
     Route: 065
     Dates: start: 20150914
  91. RANITIDINE [Concomitant]
     Active Substance: RANITIDINE
     Dosage: 300 MILLIGRAM, QD
     Route: 048
     Dates: start: 20150914
  92. LIDOCAINE [Concomitant]
     Active Substance: LIDOCAINE
     Dosage: UNK, QD (1 PATCH)
     Route: 062
     Dates: start: 20220930, end: 20221001
  93. LIDOCAINE [Concomitant]
     Active Substance: LIDOCAINE
     Dosage: 5 PERCENT, QD (ONE PATCH)
     Route: 062
     Dates: end: 20230320
  94. DOXYCYCLINE HYCLATE [Concomitant]
     Active Substance: DOXYCYCLINE HYCLATE
     Dosage: 100 MILLIGRAM, BID
     Route: 048
     Dates: start: 20170322, end: 20170412
  95. FLUTICASONE [Concomitant]
     Active Substance: FLUTICASONE
     Dosage: 50 MICROGRAM, QD (2 SPRAY INTO BOTH NOSTRILS) EVERY DAY SHAKE GENTLY
     Route: 045
     Dates: start: 20170322, end: 20180322
  96. FLUTICASONE [Concomitant]
     Active Substance: FLUTICASONE
     Dosage: 30 MICROGRAM, QD, (TWO SPRAYS IN BOTH NOSTRILS)
     Route: 045
  97. OMEPRAZOLE [Concomitant]
     Active Substance: OMEPRAZOLE
     Dosage: 40 MILLIGRAM, QD (TAKE 1 CAPSULE AT BEDTIME FOR 30 DAYS)
     Route: 048
     Dates: start: 20170322, end: 20180322
  98. XYZAL [Concomitant]
     Active Substance: LEVOCETIRIZINE DIHYDROCHLORIDE
     Dosage: 5 MILLIGRAM, QD (AT BEDTIME)
     Route: 048
     Dates: start: 20170626, end: 20180626
  99. Neo synephrine [Concomitant]
     Route: 065
  100. PREDNISONE [Concomitant]
     Active Substance: PREDNISONE
     Route: 065
  101. CETIRIZINE [Concomitant]
     Active Substance: CETIRIZINE HYDROCHLORIDE
     Route: 065
  102. RANITIDINE HYDROCHLORIDE [Concomitant]
     Active Substance: RANITIDINE HYDROCHLORIDE
     Dosage: 150 MILLIGRAM, QD (EVERY MORNING)
     Route: 048
     Dates: start: 20171218, end: 20181218
  103. ONDANSETRON HYDROCHLORIDE [Concomitant]
     Active Substance: ONDANSETRON HYDROCHLORIDE
     Dosage: 4 MILLIGRAM, Q6H
     Route: 048
     Dates: end: 20240411
  104. PENICILLIN V POTASSIUM [Concomitant]
     Active Substance: PENICILLIN V POTASSIUM
     Dosage: UNK UNK, Q12H
     Route: 048
  105. VITAMIN B12 [Concomitant]
     Active Substance: CYANOCOBALAMIN
     Dosage: 500 MICROGRAM, BID
     Route: 048
     Dates: start: 20170327, end: 20210816
  106. VITAMIN B12 [Concomitant]
     Active Substance: CYANOCOBALAMIN
     Route: 030
  107. ONDANSETRON [Concomitant]
     Active Substance: ONDANSETRON
     Dosage: 4 MILLIGRAM, Q4H
     Route: 060
     Dates: end: 20210816
  108. AMOXICILLIN AND CLAVULANATE POTASSIUM [Concomitant]
     Active Substance: AMOXICILLIN\CLAVULANATE POTASSIUM
     Dosage: 1000 MILLIGRAM, Q12H (875 MG + 125 MG)
     Route: 048
     Dates: end: 20221010
  109. SENNA PLUS [Concomitant]
     Active Substance: DOCUSATE SODIUM\SENNOSIDES\SENNOSIDES A AND B
     Dosage: UNK UNK, QD (8.6 MG-50 MG TABLET) (2 TAB AT BEDTIME FOR SEVEN DAYS)
     Route: 048
     Dates: end: 20210816
  110. NITROFURANTOIN MONOHYDRATE MACROCRYSTALS [Concomitant]
     Active Substance: NITROFURANTOIN\NITROFURANTOIN MONOHYDRATE
     Dosage: 100 MILLIGRAM, BID
     Route: 048
     Dates: end: 20240411
  111. FERAHEME [Concomitant]
     Active Substance: FERUMOXYTOL NON-STOICHIOMETRIC MAGNETITE
     Route: 040
     Dates: start: 20240930
  112. FERAHEME [Concomitant]
     Active Substance: FERUMOXYTOL NON-STOICHIOMETRIC MAGNETITE
     Route: 040
  113. IRON [Concomitant]
     Active Substance: IRON
     Route: 065

REACTIONS (80)
  - Blood pressure decreased [Unknown]
  - Auditory disorder [Unknown]
  - Sciatica [Unknown]
  - Spinal fracture [Unknown]
  - Spinal operation [Unknown]
  - Syncope [Unknown]
  - Intrinsic factor deficiency [Unknown]
  - Deafness permanent [Not Recovered/Not Resolved]
  - Eustachian tube dysfunction [Unknown]
  - Tinnitus [Not Recovered/Not Resolved]
  - Anxiety [Not Recovered/Not Resolved]
  - Emotional distress [Unknown]
  - Concomitant disease aggravated [Not Recovered/Not Resolved]
  - Abdominal pain [Unknown]
  - Vomiting [Unknown]
  - Arthralgia [Unknown]
  - Gait disturbance [Unknown]
  - Skin lesion [Unknown]
  - Constipation [Unknown]
  - Tremor [Unknown]
  - Dyspnoea [Unknown]
  - Otitis externa [Unknown]
  - Spinal osteoarthritis [Unknown]
  - Nasopharyngitis [Unknown]
  - Abdominal discomfort [Unknown]
  - Muscular weakness [Unknown]
  - Hirsutism [Unknown]
  - Paraesthesia [Unknown]
  - Myalgia [Unknown]
  - Joint swelling [Unknown]
  - Pollakiuria [Unknown]
  - Blood cholesterol increased [Unknown]
  - Blood pressure diastolic increased [Unknown]
  - Lumbar radiculopathy [Unknown]
  - Blood sodium increased [Unknown]
  - Haematocrit decreased [Unknown]
  - Mean platelet volume increased [Unknown]
  - Monocyte count increased [Unknown]
  - Lymphocyte count increased [Unknown]
  - Lymphadenopathy [Unknown]
  - Umbilical hernia [Unknown]
  - Sleep disorder [Unknown]
  - Blood thyroid stimulating hormone decreased [Unknown]
  - Spinal osteoarthritis [Unknown]
  - Depression [Unknown]
  - Disturbance in attention [Unknown]
  - Dyspepsia [Unknown]
  - Chest discomfort [Unknown]
  - Low density lipoprotein increased [Unknown]
  - Total cholesterol/HDL ratio increased [Unknown]
  - Blood thyroid stimulating hormone increased [Unknown]
  - Tenderness [Unknown]
  - Blood albumin increased [Unknown]
  - Blood testosterone increased [Unknown]
  - Alanine aminotransferase increased [Unknown]
  - High density lipoprotein decreased [Unknown]
  - Hand fracture [Unknown]
  - Pruritus [Unknown]
  - Pain [Unknown]
  - Sarcopenia [Unknown]
  - Bradycardia [Unknown]
  - Vitamin B12 decreased [Unknown]
  - Parietal cell antibody positive [Unknown]
  - Blood glucose decreased [Unknown]
  - Iron deficiency anaemia [Unknown]
  - Transferrin saturation increased [Unknown]
  - Nasal obstruction [Unknown]
  - Otitis externa [Unknown]
  - Urinary tract disorder [Unknown]
  - Pernicious anaemia [Unknown]
  - Colonoscopy [Unknown]
  - Sinus disorder [Unknown]
  - Bowel movement irregularity [Unknown]
  - Urinary tract infection [Unknown]
  - Tachycardia [Unknown]
  - Diarrhoea [Unknown]
  - Alopecia [Unknown]
  - Blood glucose increased [Unknown]
  - Weight decreased [Unknown]
  - Amenorrhoea [Unknown]

NARRATIVE: CASE EVENT DATE: 20180308
